FAERS Safety Report 5333765-5 (Version None)
Quarter: 2007Q2

REPORT INFORMATION
  Report Type: 
  Country: None (occurrence: None)
  Receive Date: 20070306
  Receipt Date: 20051214
  Transmission Date: 20071010
  Serious: Yes (Hospitalization)
  Sender: FDA-Public Use
  Company Number: A03200504208

PATIENT
  Age: 70 Year
  Sex: Male
  Weight: 80.7403 kg

DRUGS (11)
  1. PLAVIX [Suspect]
     Dosage: ORAL
     Route: 048
     Dates: start: 20040728
  2. ASPIRIN [Suspect]
     Dosage: ORAL
     Route: 048
  3. CARVEDILOL [Concomitant]
  4. RAMIPRIL [Concomitant]
  5. LEVOTHYROXINE SODIUM [Concomitant]
  6. GLYCERYL TRINITRATE [Concomitant]
  7. OTC VIT.: CHONDROTITIN/GLUCOSAMINE [Concomitant]
  8. VITAMIN E [Concomitant]
  9. CALCIUM CHLORIDE [Concomitant]
  10. MULTI-VITAMIN [Concomitant]
  11. BLINDED THERAPY FOR CORONARY DISEASE [Concomitant]

REACTIONS (3)
  - DRUG INTERACTION [None]
  - GAIT DISTURBANCE [None]
  - SUBDURAL HAEMATOMA [None]
